FAERS Safety Report 21838644 (Version 1)
Quarter: 2023Q1

REPORT INFORMATION
  Report Type: Spontaneous
  Country: US (occurrence: None)
  Receive Date: 20230108
  Receipt Date: 20230108
  Transmission Date: 20230417
  Serious: Yes (unspecified)
  Sender: FDA-Public Use
  Company Number: None

PATIENT
  Age: 40 Year
  Sex: Female
  Weight: 101.7 kg

DRUGS (12)
  1. SPRAVATO [Suspect]
     Active Substance: ESKETAMINE
     Indication: Major depression
     Dosage: OTHER QUANTITY : 3 SPRAY(S);?OTHER FREQUENCY : 1X WEEKLY;?
     Route: 055
     Dates: start: 20220303, end: 20221220
  2. CYMBALTA [Concomitant]
     Active Substance: DULOXETINE HYDROCHLORIDE
  3. ATENOLOL [Concomitant]
     Active Substance: ATENOLOL
  4. PROTONIX [Concomitant]
     Active Substance: PANTOPRAZOLE SODIUM
  5. ALBUTEROL [Concomitant]
     Active Substance: ALBUTEROL
  6. KLONOPIN [Concomitant]
     Active Substance: CLONAZEPAM
  7. BERBERINE [Concomitant]
     Active Substance: BERBERINE
  8. HERBALS\TURMERIC [Concomitant]
     Active Substance: HERBALS\TURMERIC
  9. CEYLON [Concomitant]
  10. CINNAMON [Concomitant]
     Active Substance: CINNAMON
  11. DIETARY SUPPLEMENT\HERBALS\MILK THISTLE [Concomitant]
     Active Substance: DIETARY SUPPLEMENT\HERBALS\MILK THISTLE
  12. WHITE PEONY [Concomitant]

REACTIONS (7)
  - Irritability [None]
  - Agitation [None]
  - Depression [None]
  - Anxiety [None]
  - Bladder disorder [None]
  - Insomnia [None]
  - Therapy cessation [None]

NARRATIVE: CASE EVENT DATE: 20221227
